FAERS Safety Report 17435800 (Version 1)
Quarter: 2020Q1

REPORT INFORMATION
  Report Type: Spontaneous
  Country: ES (occurrence: ES)
  Receive Date: 20200219
  Receipt Date: 20200219
  Transmission Date: 20200409
  Serious: Yes (Hospitalization)
  Sender: FDA-Public Use
  Company Number: ES-ASTRAZENECA-2020SE23724

PATIENT
  Age: 70 Year
  Sex: Male

DRUGS (11)
  1. PANTOPRAZOLE (7275A) [Concomitant]
     Active Substance: PANTOPRAZOLE SODIUM
     Dosage: 20
     Route: 048
     Dates: start: 20191008
  2. EZETIMIBE (7432A) [Suspect]
     Active Substance: EZETIMIBE
     Indication: DYSLIPIDAEMIA
     Route: 048
     Dates: start: 20190620, end: 20200107
  3. ESBRIET [Suspect]
     Active Substance: PIRFENIDONE
     Indication: IDIOPATHIC PULMONARY FIBROSIS
     Route: 048
     Dates: start: 20191003, end: 20200107
  4. EUTIROX [Concomitant]
     Active Substance: LEVOTHYROXINE SODIUM
     Indication: HYPOPITUITARISM
     Route: 048
     Dates: start: 20200124
  5. ROSUVASTATIN (8215A) [Suspect]
     Active Substance: ROSUVASTATIN
     Indication: DYSLIPIDAEMIA
     Route: 048
     Dates: start: 20181205, end: 20200107
  6. RAMIPRIL (2497A) [Concomitant]
     Active Substance: RAMIPRIL
     Indication: HYPERTENSION
     Dosage: 10
     Route: 048
     Dates: start: 20181116
  7. ADIRO [Concomitant]
     Active Substance: ASPIRIN
     Indication: MYOCARDIAL ISCHAEMIA
     Dosage: 100
     Route: 048
     Dates: start: 20161014
  8. BISOPROLOL (2328A) [Concomitant]
     Active Substance: BISOPROLOL
     Dosage: 2.5
     Route: 048
     Dates: start: 20180803
  9. TESTEX PROLONGATUM [Concomitant]
     Indication: HYPOPITUITARISM
     Dosage: 250 MG/2 ML, INJECTABLE SOLUTION, 1 AMPOULE OF 2 ML
     Dates: start: 20161014
  10. LERCANIDIPINE (2757A) [Concomitant]
     Indication: HYPERTENSION
     Dosage: 10
     Dates: start: 20190426
  11. EBASTEL [Concomitant]
     Active Substance: EBASTINE
     Dosage: 10
     Route: 048
     Dates: start: 20190530

REACTIONS (3)
  - Hepatitis [Recovering/Resolving]
  - Hyperbilirubinaemia [Recovering/Resolving]
  - Hypocoagulable state [Recovered/Resolved]

NARRATIVE: CASE EVENT DATE: 20200107
